FAERS Safety Report 17889139 (Version 27)
Quarter: 2023Q2

REPORT INFORMATION
  Report Type: Report from Study
  Country: JP (occurrence: JP)
  Receive Date: 20200612
  Receipt Date: 20230606
  Transmission Date: 20230722
  Serious: Yes (Hospitalization, Other)
  Sender: FDA-Public Use
  Company Number: NVSJ2020JP005698

PATIENT
  Age: 3 Month
  Sex: Male
  Weight: 6.4 kg

DRUGS (7)
  1. ZOLGENSMA [Suspect]
     Active Substance: ONASEMNOGENE ABEPARVOVEC-XIOI
     Indication: Spinal muscular atrophy
     Dosage: 1.19X10^14VG/KG (38.5ML)
     Route: 041
     Dates: start: 20200604, end: 20200604
  2. PREDONINE [Concomitant]
     Active Substance: PREDNISOLONE
     Indication: Product used for unknown indication
     Dosage: 1 MG/KG, QD
     Route: 048
     Dates: start: 20200603, end: 20200607
  3. PREDONINE [Concomitant]
     Active Substance: PREDNISOLONE
     Dosage: 2 MG/KG, QD
     Route: 048
     Dates: start: 20200608, end: 20200610
  4. PREDONINE [Concomitant]
     Active Substance: PREDNISOLONE
     Dosage: 1 MG/KG, QD
     Route: 048
     Dates: start: 20200611, end: 20200705
  5. PREDONINE [Concomitant]
     Active Substance: PREDNISOLONE
     Dosage: 0.75 MG/KG, QD
     Route: 048
     Dates: start: 20200706, end: 20200719
  6. PREDONINE [Concomitant]
     Active Substance: PREDNISOLONE
     Dosage: 0.5 MG/KG, QD
     Route: 048
     Dates: start: 20200720, end: 20200802
  7. PREDONINE [Concomitant]
     Active Substance: PREDNISOLONE
     Dosage: 0.25 MG/KG, QD
     Route: 048
     Dates: start: 20200803, end: 20200817

REACTIONS (15)
  - Aspartate aminotransferase increased [Recovered/Resolved]
  - Alanine aminotransferase increased [Recovered/Resolved]
  - Myelosuppression [Recovered/Resolved]
  - Neutrophil count decreased [Recovered/Resolved]
  - Haemophagocytic lymphohistiocytosis [Recovered/Resolved]
  - Cytokine storm [Recovered/Resolved]
  - Blood lactate dehydrogenase increased [Recovered/Resolved]
  - Blood creatine phosphokinase increased [Recovered/Resolved]
  - Pyrexia [Recovered/Resolved]
  - Platelet count decreased [Recovered/Resolved]
  - White blood cell count decreased [Recovered/Resolved]
  - Blood creatine phosphokinase increased [Unknown]
  - Serum ferritin increased [Recovered/Resolved]
  - Hepatic enzyme increased [Recovered/Resolved]
  - Troponin I increased [Recovered/Resolved]

NARRATIVE: CASE EVENT DATE: 20200607
